FAERS Safety Report 5838008-1 (Version None)
Quarter: 2008Q3

REPORT INFORMATION
  Report Type: 
  Country: None (occurrence: None)
  Receive Date: 20080808
  Receipt Date: 20080218
  Transmission Date: 20090109
  Serious: No
  Sender: FDA-Public Use
  Company Number: A0710251A

PATIENT
  Sex: Female

DRUGS (5)
  1. PAXIL [Suspect]
     Dosage: 5MG PER DAY
     Route: 048
     Dates: start: 20071001, end: 20080101
  2. ESTROGEN + PROGESTERONE [Concomitant]
  3. METOPROLOL SUCCINATE [Concomitant]
  4. XANAX [Concomitant]
  5. TESTOSTERONE [Concomitant]

REACTIONS (1)
  - TINNITUS [None]
